FAERS Safety Report 10282746 (Version 2)
Quarter: 2014Q3

REPORT INFORMATION
  Report Type: Spontaneous
  Country: FR (occurrence: FR)
  Receive Date: 20140708
  Receipt Date: 20140722
  Transmission Date: 20150326
  Serious: Yes (Hospitalization)
  Sender: FDA-Public Use
  Company Number: FR-PFIZER INC-2014188893

PATIENT
  Age: 75 Year
  Sex: Female

DRUGS (6)
  1. RAMIPRIL WINTHROP [Suspect]
     Active Substance: RAMIPRIL
     Dosage: 5 MG, DAILY
     Route: 048
     Dates: start: 2005
  2. PRAVASTATIN SODIUM. [Suspect]
     Active Substance: PRAVASTATIN SODIUM
     Indication: DYSLIPIDAEMIA
     Dosage: 1 DF, DAILY
     Route: 048
     Dates: start: 2006
  3. VASTAREL [Suspect]
     Active Substance: TRIMETAZIDINE DIHYDROCHLORIDE
     Dosage: 35 MG, 2X/DAY
     Route: 048
     Dates: end: 20080313
  4. KARDEGIC [Suspect]
     Active Substance: ASPIRIN LYSINE
     Dosage: 75 MG, DAILY
     Route: 048
     Dates: start: 200712
  5. HYDREA [Suspect]
     Active Substance: HYDROXYUREA
     Dosage: 500 MG, DAILY
     Route: 048
     Dates: start: 200712, end: 20080114
  6. CELIPROLOL SANDOZ [Suspect]
     Active Substance: CELIPROLOL
     Dosage: 200 MG, DAILY
     Route: 048
     Dates: end: 20080313

REACTIONS (1)
  - Interstitial lung disease [Unknown]

NARRATIVE: CASE EVENT DATE: 20080313
